FAERS Safety Report 19836772 (Version 1)
Quarter: 2021Q3

REPORT INFORMATION
  Report Type: Spontaneous
  Country: CN (occurrence: CN)
  Receive Date: 20210914
  Receipt Date: 20210914
  Transmission Date: 20211014
  Serious: Yes (Life-Threatening, Hospitalization, Other)
  Sender: FDA-Public Use
  Company Number: CN-ELI_LILLY_AND_COMPANY-CN202109002982

PATIENT
  Age: 57 Year
  Sex: Male
  Weight: 64 kg

DRUGS (2)
  1. GEMZAR [Suspect]
     Active Substance: GEMCITABINE HYDROCHLORIDE
     Dosage: 1700 MG, DAILY
     Route: 041
     Dates: start: 20210727, end: 20210727
  2. GEMZAR [Suspect]
     Active Substance: GEMCITABINE HYDROCHLORIDE
     Indication: NONKERATINISING CARCINOMA OF NASOPHARYNX
     Dosage: 1700 MG, DAILY
     Route: 041
     Dates: start: 20210719, end: 20210719

REACTIONS (8)
  - Cardiac failure chronic [Unknown]
  - Atrial fibrillation [Recovering/Resolving]
  - Hypertrophic cardiomyopathy [Unknown]
  - Off label use [Unknown]
  - Sinus arrhythmia [Unknown]
  - Extrasystoles [Unknown]
  - Electrocardiogram QT prolonged [Unknown]
  - Cardiomyopathy [Unknown]

NARRATIVE: CASE EVENT DATE: 20210719
